FAERS Safety Report 22041027 (Version 1)
Quarter: 2023Q1

REPORT INFORMATION
  Report Type: Spontaneous
  Country: US (occurrence: None)
  Receive Date: 20230226
  Receipt Date: 20230226
  Transmission Date: 20230417
  Serious: Yes (Hospitalization, Other)
  Sender: FDA-Public Use
  Company Number: None

PATIENT
  Age: 5 Year
  Sex: Female
  Weight: 22.5 kg

DRUGS (1)
  1. METHOTREXATE [Suspect]
     Active Substance: METHOTREXATE
     Indication: Leukaemia
     Dates: start: 20221123, end: 20230102

REACTIONS (2)
  - Seizure [None]
  - Brain oedema [None]

NARRATIVE: CASE EVENT DATE: 20221222
